FAERS Safety Report 4902378-9 (Version None)
Quarter: 2006Q1

REPORT INFORMATION
  Report Type: 
  Country: None (occurrence: None)
  Receive Date: 20060203
  Receipt Date: 20060203
  Transmission Date: 20060701
  Serious: Yes (Other)
  Sender: FDA-Public Use
  Company Number: None

PATIENT
  Age: 38 Year
  Sex: Female
  Weight: 78.0187 kg

DRUGS (1)
  1. ULTRASE MT20 [Suspect]
     Indication: PANCREATIC INSUFFICIENCY
     Dosage: 2 CAPSULES 3 TIMES A DAY INJ
     Dates: start: 20050815, end: 20060108

REACTIONS (1)
  - CHEST PAIN [None]
